FAERS Safety Report 9535986 (Version 1)
Quarter: 2013Q3

REPORT INFORMATION
  Report Type: Spontaneous
  Country: US (occurrence: US)
  Receive Date: 20130919
  Receipt Date: 20130919
  Transmission Date: 20140515
  Serious: Yes (Other)
  Sender: FDA-Public Use
  Company Number: US-AMGEN-USASP2013065177

PATIENT
  Age: 50 Year
  Sex: Male

DRUGS (10)
  1. ENBREL [Suspect]
     Indication: PRODUCT USED FOR UNKNOWN INDICATION
     Dosage: UNK
     Route: 058
  2. LOTREL [Concomitant]
     Dosage: 5-10 MG
  3. METFORMIN [Concomitant]
     Dosage: 500 MG, UNK
  4. SYMBICORT [Concomitant]
     Dosage: 80-4.5
  5. ENTOCORT EC [Concomitant]
     Dosage: 3 MG/24 HR
  6. ASA [Concomitant]
     Dosage: 81 MG, UNK
  7. PERCOCET                           /00446701/ [Concomitant]
     Dosage: 5-325 MG
  8. ZEGERID                            /00661201/ [Concomitant]
     Dosage: 20-1100 UNK
  9. PREDNISONE [Concomitant]
     Dosage: 10 MG, UNK
  10. TESTOSTERONE [Concomitant]
     Dosage: 100 MG/ML

REACTIONS (2)
  - Clostridium difficile infection [Unknown]
  - Colitis ulcerative [Unknown]
